FAERS Safety Report 15373174 (Version 1)
Quarter: 2018Q3

REPORT INFORMATION
  Report Type: Spontaneous
  Country: IT (occurrence: IT)
  Receive Date: 20180912
  Receipt Date: 20180912
  Transmission Date: 20181010
  Serious: Yes (Hospitalization, Other)
  Sender: FDA-Public Use
  Company Number: IT-MLMSERVICE-20170208-0603163-1

PATIENT
  Age: 49 Year
  Sex: Female
  Weight: 68 kg

DRUGS (8)
  1. PRAVASTATIN. [Suspect]
     Active Substance: PRAVASTATIN
     Indication: TYPE IIA HYPERLIPIDAEMIA
     Dosage: 20 MG, QD
     Route: 065
     Dates: start: 1991, end: 2000
  2. ATORVASTATIN [Suspect]
     Active Substance: ATORVASTATIN
     Indication: TYPE IIA HYPERLIPIDAEMIA
     Dosage: 20 MG, QD
     Route: 065
     Dates: start: 2001
  3. METHOTREXATE (METHOTREXATE SODIUM) [Concomitant]
     Active Substance: METHOTREXATE SODIUM
     Indication: COGAN^S SYNDROME
     Dosage: 10 MG, UNK (PER WEEK)
     Route: 065
  4. METHYLPREDNISOLONE                 /00049602/ [Concomitant]
     Active Substance: METHYLPREDNISOLONE
     Indication: COGAN^S SYNDROME
     Dosage: 4 MG, QD
     Route: 065
  5. PANTOPRAZOLE [Concomitant]
     Active Substance: PANTOPRAZOLE
     Indication: COGAN^S SYNDROME
     Dosage: 20 MG, QD
     Route: 065
  6. EZETIMIBE. [Suspect]
     Active Substance: EZETIMIBE
     Indication: TYPE IIA HYPERLIPIDAEMIA
     Dosage: UNK
     Route: 065
  7. SALICYLIC ACID SODIUM [Concomitant]
     Indication: COGAN^S SYNDROME
     Dosage: 100 MG, QD
     Route: 065
     Dates: start: 2000
  8. FLUVASTATIN [Suspect]
     Active Substance: FLUVASTATIN SODIUM
     Indication: TYPE IIA HYPERLIPIDAEMIA
     Dosage: UNK
     Route: 065

REACTIONS (8)
  - Rhabdomyolysis [Recovered/Resolved]
  - Pain [Unknown]
  - Myoglobinuria [Recovered/Resolved]
  - Blood creatinine increased [Not Recovered/Not Resolved]
  - Myositis [Unknown]
  - Acute kidney injury [Recovered/Resolved]
  - Drug intolerance [Recovered/Resolved]
  - Myalgia [Recovered/Resolved]

NARRATIVE: CASE EVENT DATE: 2002
